FAERS Safety Report 6692592-7 (Version None)
Quarter: 2010Q2

REPORT INFORMATION
  Report Type: 
  Country: None (occurrence: None)
  Receive Date: 20100422
  Receipt Date: 20100412
  Transmission Date: 20101027
  Serious: Yes (Other)
  Sender: FDA-Public Use
  Company Number: JP-PFIZER INC-2010042190

PATIENT
  Age: 70 Year
  Sex: Male
  Weight: 45 kg

DRUGS (5)
  1. VFEND [Suspect]
     Indication: BRONCHOPULMONARY ASPERGILLOSIS
     Dosage: 200 MG, 2X/DAY
     Route: 042
     Dates: start: 20100226, end: 20100323
  2. SERENACE [Concomitant]
     Indication: DELIRIUM
     Dosage: UNK
     Route: 048
     Dates: start: 20100323, end: 20100330
  3. SERENACE [Concomitant]
     Dosage: UNK
     Route: 042
     Dates: start: 20100324, end: 20100324
  4. FUROSEMIDE [Concomitant]
     Route: 042
     Dates: start: 20100314, end: 20100412
  5. CEFAZOLIN SODIUM [Concomitant]
     Route: 042
     Dates: start: 20100319, end: 20100329

REACTIONS (6)
  - AGITATION [None]
  - DELIRIUM [None]
  - DYSKINESIA [None]
  - PSYCHIATRIC SYMPTOM [None]
  - RESTLESSNESS [None]
  - SPEECH DISORDER [None]
